FAERS Safety Report 6651581-9 (Version None)
Quarter: 2010Q1

REPORT INFORMATION
  Report Type: 
  Country: None (occurrence: None)
  Receive Date: 20100325
  Receipt Date: 20100317
  Transmission Date: 20100710
  Serious: No
  Sender: FDA-Public Use
  Company Number: US-ROCHE-692662

PATIENT
  Sex: Male

DRUGS (1)
  1. ACCUTANE [Suspect]
     Indication: DRUG USE FOR UNKNOWN INDICATION
     Route: 064
     Dates: start: 19870101

REACTIONS (2)
  - LIVE BIRTH [None]
  - NO ADVERSE EVENT [None]
